FAERS Safety Report 7244085-6 (Version None)
Quarter: 2010Q4

REPORT INFORMATION
  Report Type: 
  Country: None (occurrence: None)
  Receive Date: 20101130
  Receipt Date: 20090901
  Transmission Date: 20110411
  Serious: Yes (Hospitalization, Other)
  Sender: FDA-Public Use
  Company Number: 2009SP023526

PATIENT
  Age: 32 Year
  Sex: Female
  Weight: 88.905 kg

DRUGS (4)
  1. NUVARING [Suspect]
     Indication: CONTRACEPTION
     Dates: start: 20051201, end: 20060901
  2. PROVENTIL [Concomitant]
  3. SINGULAIR [Concomitant]
  4. ALLEGRA D 24 HOUR [Concomitant]

REACTIONS (3)
  - PHLEBITIS [None]
  - PULMONARY EMBOLISM [None]
  - VENOUS INSUFFICIENCY [None]
